FAERS Safety Report 21035566 (Version 1)
Quarter: 2022Q3

REPORT INFORMATION
  Report Type: Spontaneous
  Country: PR (occurrence: PR)
  Receive Date: 20220701
  Receipt Date: 20220701
  Transmission Date: 20221027
  Serious: Yes (Hospitalization)
  Sender: FDA-Public Use
  Company Number: PR-BAXTER-2022BAX013622

PATIENT
  Age: 80 Year
  Sex: Male

DRUGS (1)
  1. CLINIMIX [Suspect]
     Active Substance: ALANINE\ARGININE\DEXTROSE\GLYCINE\HISTIDINE\ISOLEUCINE\LEUCINE\LYSINE\METHIONINE\PHENYLALANINE\PROLI
     Dosage: 1 L, QD
     Route: 065

REACTIONS (5)
  - Lip pruritus [Unknown]
  - Tongue pruritus [Unknown]
  - Tongue disorder [Unknown]
  - Eye swelling [Unknown]
  - Hypersensitivity [Unknown]
